FAERS Safety Report 5926820-X (Version None)
Quarter: 2008Q4

REPORT INFORMATION
  Report Type: 
  Country: None (occurrence: None)
  Receive Date: 20081017
  Receipt Date: 20081006
  Transmission Date: 20090506
  Serious: Yes (Death, Hospitalization, Other)
  Sender: FDA-Public Use
  Company Number: 2008US002220

PATIENT
  Age: 48 Year
  Sex: Male

DRUGS (5)
  1. PROGRAF [Suspect]
     Indication: LUNG TRANSPLANT
  2. AZATHIOPRINE [Suspect]
     Indication: LUNG TRANSPLANT
  3. PREDNISOLONE ACETATE [Suspect]
     Indication: LUNG TRANSPLANT
  4. SIROLIMUS (SIROLIMUS) [Concomitant]
  5. MYCOPHENOLATE MOFETIL [Concomitant]

REACTIONS (10)
  - ANAEMIA [None]
  - ASCITES [None]
  - BRONCHOPULMONARY ASPERGILLOSIS [None]
  - CYTOMEGALOVIRUS INFECTION [None]
  - DIARRHOEA [None]
  - FAILURE TO THRIVE [None]
  - KAPOSI'S SARCOMA [None]
  - LUNG TRANSPLANT REJECTION [None]
  - PANCYTOPENIA [None]
  - RENAL FAILURE ACUTE [None]
